FAERS Safety Report 12840249 (Version 3)
Quarter: 2017Q3

REPORT INFORMATION
  Report Type: Spontaneous
  Country: US (occurrence: US)
  Receive Date: 20161012
  Receipt Date: 20170710
  Transmission Date: 20171127
  Serious: No
  Sender: FDA-Public Use
  Company Number: US-TEVA-701855USA

PATIENT
  Age: 57 Year
  Sex: Female

DRUGS (21)
  1. CLONIDINE. [Concomitant]
     Active Substance: CLONIDINE
  2. RANITIDINE. [Concomitant]
     Active Substance: RANITIDINE
  3. MECLIZINE [Concomitant]
     Active Substance: MECLIZINE HYDROCHLORIDE
  4. GABAPENTIN. [Concomitant]
     Active Substance: GABAPENTIN
  5. WAL-DRYL [Concomitant]
     Active Substance: DIPHENHYDRAMINE HYDROCHLORIDE
  6. COPAXONE [Suspect]
     Active Substance: GLATIRAMER ACETATE
     Indication: MULTIPLE SCLEROSIS
     Route: 058
     Dates: start: 20150522
  7. DOCUSATE [Concomitant]
     Active Substance: DOCUSATE
  8. LISINOPRIL. [Concomitant]
     Active Substance: LISINOPRIL
  9. CEPHALEXIN. [Concomitant]
     Active Substance: CEPHALEXIN
  10. AMLODIPINE [Concomitant]
     Active Substance: AMLODIPINE BESYLATE
  11. PRAVASTATIN. [Concomitant]
     Active Substance: PRAVASTATIN
  12. DULOXETINE. [Concomitant]
     Active Substance: DULOXETINE
  13. LORATADINE. [Concomitant]
     Active Substance: LORATADINE
  14. CLONAZEPAM. [Concomitant]
     Active Substance: CLONAZEPAM
  15. QUETIAPINE. [Concomitant]
     Active Substance: QUETIAPINE
  16. TRAMADOL. [Concomitant]
     Active Substance: TRAMADOL
  17. SULFASALAZINE. [Concomitant]
     Active Substance: SULFASALAZINE
  18. ORPHENADRINE [Concomitant]
     Active Substance: ORPHENADRINE
  19. TRAZODONE [Concomitant]
     Active Substance: TRAZODONE HYDROCHLORIDE
  20. BACLOFEN. [Concomitant]
     Active Substance: BACLOFEN
  21. SUMATRIPTAN. [Concomitant]
     Active Substance: SUMATRIPTAN

REACTIONS (11)
  - Hypersensitivity [Recovered/Resolved]
  - Dyspnoea [Unknown]
  - Urticaria [Recovered/Resolved]
  - Injection site pain [Not Recovered/Not Resolved]
  - Injection site pruritus [Recovered/Resolved]
  - Injection site erythema [Recovered/Resolved]
  - Injection site mass [Not Recovered/Not Resolved]
  - Headache [Unknown]
  - Drug dose omission [Unknown]
  - Rash [Recovered/Resolved]
  - Injection site swelling [Recovered/Resolved]

NARRATIVE: CASE EVENT DATE: 2016
